FAERS Safety Report 16801954 (Version 1)
Quarter: 2019Q3

REPORT INFORMATION
  Report Type: Spontaneous
  Country: US (occurrence: US)
  Receive Date: 20190912
  Receipt Date: 20190912
  Transmission Date: 20191005
  Serious: Yes (Death, Other)
  Sender: FDA-Public Use
  Company Number: US-ELI_LILLY_AND_COMPANY-US201909004433

PATIENT
  Sex: Female

DRUGS (4)
  1. PIOGLITAZONE. [Concomitant]
     Active Substance: PIOGLITAZONE
     Indication: PRODUCT USED FOR UNKNOWN INDICATION
  2. HUMULIN N [Suspect]
     Active Substance: INSULIN HUMAN
     Dosage: UNK, BID
     Route: 065
  3. INSULIN, ANIMAL [Suspect]
     Active Substance: INSULIN NOS
     Indication: PRODUCT USED FOR UNKNOWN INDICATION
     Dosage: UNK UNK, QOD
     Route: 065
     Dates: start: 1969
  4. HUMULIN N [Suspect]
     Active Substance: INSULIN HUMAN
     Indication: PRODUCT USED FOR UNKNOWN INDICATION
     Dosage: UNK, DAILY
     Route: 065

REACTIONS (8)
  - Chronic obstructive pulmonary disease [Unknown]
  - Chronic kidney disease [Unknown]
  - Arterial occlusive disease [Unknown]
  - Blood potassium increased [Unknown]
  - Ill-defined disorder [Fatal]
  - Blood iron decreased [Unknown]
  - Renal impairment [Unknown]
  - Cardiac failure congestive [Unknown]
